FAERS Safety Report 8243497-1 (Version None)
Quarter: 2012Q1

REPORT INFORMATION
  Report Type: 
  Country: None (occurrence: None)
  Receive Date: 20120315
  Receipt Date: 20100325
  Transmission Date: 20120608
  Serious: No
  Sender: FDA-Public Use
  Company Number: PHHY2010US18644

PATIENT
  Sex: Male

DRUGS (1)
  1. FANAPT [Suspect]
     Dosage: 8 MG, BID

REACTIONS (3)
  - WEIGHT INCREASED [None]
  - ERECTILE DYSFUNCTION [None]
  - ANORGASMIA [None]
